FAERS Safety Report 8289551-X (Version None)
Quarter: 2012Q2

REPORT INFORMATION
  Report Type: 
  Country: None (occurrence: None)
  Receive Date: 20120417
  Receipt Date: 20120409
  Transmission Date: 20120825
  Serious: Yes (Other)
  Sender: FDA-Public Use
  Company Number: JP-BRISTOL-MYERS SQUIBB COMPANY-16517021

PATIENT
  Age: 70 Year
  Sex: Male

DRUGS (5)
  1. GASMOTIN [Concomitant]
     Route: 048
  2. AMLODIPINE BESYLATE [Suspect]
     Route: 048
  3. PLAVIX [Concomitant]
     Route: 048
  4. METFORMIN HCL [Suspect]
     Route: 048
  5. ALFAROL [Suspect]
     Route: 048

REACTIONS (1)
  - LIVER DISORDER [None]
